FAERS Safety Report 8679385 (Version 2)
Quarter: 2012Q4

REPORT INFORMATION
  Report Type: Spontaneous
  Country: US (occurrence: None)
  Receive Date: 20120712
  Receipt Date: 20120829
  Transmission Date: 20130627
  Serious: Yes (Other)
  Sender: FDA-Public Use
  Company Number: 2012032738

PATIENT
  Age: 43 Year
  Sex: Female

DRUGS (12)
  1. HUMATE-P [Suspect]
     Indication: VON WILLEBRAND^S DISEASE
     Route: 042
     Dates: start: 20110811
  2. HUMATE-P [Suspect]
     Indication: SURGERY
     Route: 042
     Dates: start: 20110811
  3. HUMATE-P [Suspect]
     Indication: VON WILLEBRAND^S DISEASE
     Route: 042
     Dates: start: 20110906
  4. HUMATE-P [Suspect]
     Indication: SURGERY
     Route: 042
     Dates: start: 20110906
  5. HUMATE-P [Suspect]
     Indication: VON WILLEBRAND^S DISEASE
     Route: 042
     Dates: start: 20111118
  6. HUMATE-P [Suspect]
     Indication: SURGERY
     Route: 042
     Dates: start: 20111118
  7. HUMATE-P [Suspect]
     Indication: VON WILLEBRAND^S DISEASE
     Route: 042
     Dates: start: 20110124
  8. HUMATE-P [Suspect]
     Indication: SURGERY
     Route: 042
     Dates: start: 20110124
  9. HUMATE-P [Suspect]
     Indication: VON WILLEBRAND^S DISEASE
     Route: 042
     Dates: start: 20120227
  10. HUMATE-P [Suspect]
     Indication: SURGERY
     Route: 042
     Dates: start: 20120227
  11. HUMATE-P [Suspect]
     Indication: VON WILLEBRAND^S DISEASE
     Dosage: last dose april 2012
     Dates: start: 20120227
  12. HUMATE-P [Suspect]
     Indication: SURGERY
     Dosage: last dose april 2012
     Dates: start: 20120227

REACTIONS (5)
  - FATIGUE [None]
  - NASOPHARYNGITIS [None]
  - GENITAL HERPES [None]
  - EPSTEIN-BARR VIRUS INFECTION [None]
  - Transmission of an infectious agent via product [None]
